FAERS Safety Report 4593759-4 (Version None)
Quarter: 2005Q1

REPORT INFORMATION
  Report Type: 
  Country: None (occurrence: None)
  Receive Date: 20050224
  Receipt Date: 20041130
  Transmission Date: 20050727
  Serious: No
  Sender: FDA-Public Use
  Company Number: US-BRISTOL-MYERS SQUIBB COMPANY-12791794

PATIENT
  Sex: Female
  Weight: 67 kg

DRUGS (2)
  1. EXCEDRIN (MIGRAINE) [Suspect]
     Indication: PAIN
     Route: 048
     Dates: start: 19920101
  2. EXCEDRIN (MIGRAINE) [Suspect]
     Indication: RADICAL NECK DISSECTION
     Route: 048
     Dates: start: 19920101

REACTIONS (2)
  - DRUG INEFFECTIVE [None]
  - FATIGUE [None]
